FAERS Safety Report 9783589 (Version 1)
Quarter: 2013Q4

REPORT INFORMATION
  Report Type: Spontaneous
  Country: US (occurrence: None)
  Receive Date: 20131223
  Receipt Date: 20131223
  Transmission Date: 20140711
  Serious: Yes (Hospitalization)
  Sender: FDA-Public Use
  Company Number: 2013AP010571

PATIENT
  Age: 78 Year
  Sex: Female

DRUGS (4)
  1. GABAPENTIN [Suspect]
     Indication: NEURALGIA
  2. TRAZODONE HYDROCHLORIDE TABLETS [Suspect]
     Indication: INSOMNIA
  3. ESCITALOPRAM OXALATE [Suspect]
     Indication: DEPRESSION
     Dosage: 20 MG, AM
  4. LEVETIRACETAM [Suspect]

REACTIONS (4)
  - Off label use [None]
  - Thalamic infarction [None]
  - Cerebral small vessel ischaemic disease [None]
  - Electroencephalogram abnormal [None]
